FAERS Safety Report 10818604 (Version 1)
Quarter: 2015Q1

REPORT INFORMATION
  Report Type: Report from Study
  Country: US (occurrence: None)
  Receive Date: 20150213
  Receipt Date: 20150213
  Transmission Date: 20150721
  Serious: Yes (Other)
  Sender: FDA-Public Use
  Company Number: 2015BI011282

PATIENT
  Age: 70 Year
  Sex: Female

DRUGS (2)
  1. TECFIDERA [Suspect]
     Active Substance: DIMETHYL FUMARATE
     Indication: MULTIPLE SCLEROSIS
     Route: 048
     Dates: start: 20131205, end: 20131212
  2. AVONEX [Concomitant]
     Active Substance: INTERFERON BETA-1A

REACTIONS (9)
  - Somnolence [None]
  - Seizure like phenomena [None]
  - Asthenia [None]
  - Endoscopy [None]
  - Feeling abnormal [None]
  - Colonoscopy [None]
  - Pyrexia [None]
  - Decreased appetite [None]
  - Fatigue [None]
